FAERS Safety Report 4659497-4 (Version None)
Quarter: 2005Q2

REPORT INFORMATION
  Report Type: 
  Country: None (occurrence: None)
  Receive Date: 20050511
  Receipt Date: 20050428
  Transmission Date: 20051028
  Serious: Yes (Hospitalization)
  Sender: FDA-Public Use
  Company Number: 2005AP000329

PATIENT
  Age: 52 Year
  Sex: Female

DRUGS (4)
  1. CITALOPRAM HYDROBROMIDE [Suspect]
     Indication: DEPRESSION
     Dosage: 60 MG; QD; PO
     Route: 048
  2. BUSPAR [Suspect]
     Indication: ANXIETY
     Dosage: 10 MG; TID; PO
     Route: 048
  3. WELLBUTRIN [Suspect]
  4. AVELOX [Suspect]

REACTIONS (4)
  - ANAPHYLACTIC REACTION [None]
  - ASTHMA [None]
  - DRUG HYPERSENSITIVITY [None]
  - PYREXIA [None]
